FAERS Safety Report 22093172 (Version 11)
Quarter: 2025Q4

REPORT INFORMATION
  Report Type: Report from Study
  Country: JP (occurrence: JP)
  Receive Date: 20230314
  Receipt Date: 20251110
  Transmission Date: 20260117
  Serious: Yes (Hospitalization, Other)
  Sender: ABBVIE
  Company Number: JP-TAKEDA-2020TJP003729

PATIENT
  Age: 54 Year
  Sex: Male
  Weight: 74 kg

DRUGS (3)
  1. LEUPROLIDE ACETATE [Suspect]
     Active Substance: LEUPROLIDE ACETATE
     Indication: Bulbospinal muscular atrophy congenital
     Dosage: FORM STRENGTH: 11.25 MILLIGRAM, Q3MONTHS
     Route: 058
     Dates: start: 20181025
  2. FEBUXOSTAT [Concomitant]
     Active Substance: FEBUXOSTAT
     Indication: Product used for unknown indication
     Dosage: FORM STRENGTH: 20 MILLIGRAM
     Route: 065
  3. CRESTOR [Concomitant]
     Active Substance: ROSUVASTATIN CALCIUM
     Indication: Lipid metabolism disorder
     Dosage: 2.5 MILLIGRAM
     Route: 065

REACTIONS (6)
  - Angina pectoris [Not Recovered/Not Resolved]
  - Male sexual dysfunction [Not Recovered/Not Resolved]
  - Lipid metabolism disorder [Recovered/Resolved]
  - Liver disorder [Recovering/Resolving]
  - Diabetic metabolic decompensation [Not Recovered/Not Resolved]
  - Sleep apnoea syndrome [Not Recovered/Not Resolved]

NARRATIVE: CASE EVENT DATE: 20181201
